FAERS Safety Report 9399948 (Version 1)
Quarter: 2013Q3

REPORT INFORMATION
  Report Type: Spontaneous
  Country: US (occurrence: US)
  Receive Date: 20130715
  Receipt Date: 20130715
  Transmission Date: 20140515
  Serious: Yes (Other)
  Sender: FDA-Public Use
  Company Number: US-PFIZER INC-2013205677

PATIENT
  Age: 64 Year
  Sex: Female
  Weight: 74.38 kg

DRUGS (1)
  1. EFFEXOR [Suspect]
     Indication: DEPRESSION
     Dosage: 100 MG, 1X/DAY
     Route: 048

REACTIONS (4)
  - Road traffic accident [Recovering/Resolving]
  - Upper limb fracture [Not Recovered/Not Resolved]
  - Vitamin D deficiency [Unknown]
  - Drug ineffective [Unknown]
